FAERS Safety Report 8554645-8 (Version None)
Quarter: 2012Q3

REPORT INFORMATION
  Report Type: 
  Country: None (occurrence: None)
  Receive Date: 20120725
  Receipt Date: 20120725
  Transmission Date: 20120928
  Serious: Yes (Hospitalization)
  Sender: FDA-Public Use
  Company Number: None

PATIENT
  Age: 55 Year
  Sex: Male
  Weight: 120.5 kg

DRUGS (1)
  1. LISINOPRIL [Suspect]
     Dosage: 40 MG EVERY DAY PO
     Route: 048
     Dates: end: 20120612

REACTIONS (6)
  - ANGIOEDEMA [None]
  - PHARYNGEAL OEDEMA [None]
  - SWELLING [None]
  - TONSILLAR HYPERTROPHY [None]
  - DYSPHAGIA [None]
  - PERIORBITAL OEDEMA [None]
